FAERS Safety Report 7798860-X (Version None)
Quarter: 2011Q4

REPORT INFORMATION
  Report Type: 
  Country: None (occurrence: None)
  Receive Date: 20111006
  Receipt Date: 20110928
  Transmission Date: 20120403
  Serious: Yes (Other)
  Sender: FDA-Public Use
  Company Number: US-US-EMD SERONO, INC.-7084805

PATIENT
  Sex: Female
  Weight: 62 kg

DRUGS (6)
  1. KLONOPIN [Concomitant]
     Route: 048
  2. PROTONIX [Concomitant]
     Route: 048
  3. REBIF [Suspect]
     Indication: MULTIPLE SCLEROSIS
     Route: 058
     Dates: start: 20030401
  4. PREDNISONE [Concomitant]
     Indication: SARCOIDOSIS
     Route: 048
  5. LUBIPROSTONE [Concomitant]
     Route: 048
  6. ROXICODONE [Concomitant]
     Route: 048

REACTIONS (7)
  - OSTEOARTHRITIS [None]
  - INJECTION SITE MASS [None]
  - INJECTION SITE PAIN [None]
  - INJECTION SITE HAEMATOMA [None]
  - FATIGUE [None]
  - MEMORY IMPAIRMENT [None]
  - INJECTION SITE ERYTHEMA [None]
